FAERS Safety Report 5517887-1 (Version None)
Quarter: 2007Q4

REPORT INFORMATION
  Report Type: 
  Country: None (occurrence: None)
  Receive Date: 20071113
  Receipt Date: 20071031
  Transmission Date: 20080405
  Serious: Yes (Death)
  Sender: FDA-Public Use
  Company Number: 163056USA

PATIENT
  Age: 8 Month
  Sex: Male

DRUGS (4)
  1. PROPOFOL [Suspect]
     Indication: INDUCTION OF ANAESTHESIA
     Dosage: INTRAVENOUS DRIP
     Route: 041
  2. SEVOFLURANE [Suspect]
  3. FENTANYL [Suspect]
  4. ROCURONIUM BROMIDE [Suspect]
     Indication: INDUCTION OF ANAESTHESIA

REACTIONS (18)
  - ACTIVATED PARTIAL THROMBOPLASTIN TIME PROLONGED [None]
  - BLOOD PH DECREASED [None]
  - BRADYCARDIA [None]
  - CARDIAC VENTRICULAR DISORDER [None]
  - HYPOCALCAEMIA [None]
  - HYPOKALAEMIA [None]
  - HYPOMAGNESAEMIA [None]
  - HYPOTENSION [None]
  - INTERNATIONAL NORMALISED RATIO INCREASED [None]
  - METABOLIC ACIDOSIS [None]
  - PARTIAL SEIZURES [None]
  - PCO2 INCREASED [None]
  - PO2 DECREASED [None]
  - POSTOPERATIVE FEVER [None]
  - PROTHROMBIN TIME PROLONGED [None]
  - RHABDOMYOLYSIS [None]
  - SEPSIS [None]
  - TACHYCARDIA [None]
